FAERS Safety Report 13321571 (Version 2)
Quarter: 2017Q1

REPORT INFORMATION
  Report Type: Spontaneous
  Country: BR (occurrence: BR)
  Receive Date: 20170310
  Receipt Date: 20170315
  Transmission Date: 20170428
  Serious: Yes (Hospitalization)
  Sender: FDA-Public Use
  Company Number: BR-BIOMARINAP-BR-2017-113065

PATIENT
  Age: 22 Year
  Sex: Male
  Weight: 24.6 kg

DRUGS (1)
  1. VIMIZIM [Suspect]
     Active Substance: ELOSULFASE ALFA
     Indication: MUCOPOLYSACCHARIDOSIS IV
     Dosage: 50 MG, QW
     Route: 042
     Dates: start: 20150303

REACTIONS (6)
  - Hypotension [Recovered/Resolved]
  - Pyrexia [Recovering/Resolving]
  - Tachycardia [Recovered/Resolved]
  - Hyperhidrosis [Recovering/Resolving]
  - Purulent discharge [Unknown]
  - Dehydration [Recovered/Resolved]

NARRATIVE: CASE EVENT DATE: 20170224
